FAERS Safety Report 20104440 (Version 1)
Quarter: 2021Q4

REPORT INFORMATION
  Report Type: Spontaneous
  Country: US (occurrence: None)
  Receive Date: 20211123
  Receipt Date: 20211123
  Transmission Date: 20220303
  Serious: Yes (Hospitalization)
  Sender: FDA-Public Use
  Company Number: None

PATIENT
  Age: 71 Year
  Sex: Male

DRUGS (1)
  1. GADOBUTROL [Suspect]
     Active Substance: GADOBUTROL
     Indication: Product used for unknown indication

REACTIONS (8)
  - Mental status changes [None]
  - Post procedural complication [None]
  - Infusion site extravasation [None]
  - Wrong technique in device usage process [None]
  - Wrong technique in product usage process [None]
  - Incorrect drug administration rate [None]
  - Drug monitoring procedure not performed [None]
  - Device use error [None]
